FAERS Safety Report 8103458-X (Version None)
Quarter: 2012Q1

REPORT INFORMATION
  Report Type: 
  Country: None (occurrence: None)
  Receive Date: 20120201
  Receipt Date: 20120120
  Transmission Date: 20120608
  Serious: Yes (Other)
  Sender: FDA-Public Use
  Company Number: PHEH2012US001153

PATIENT
  Sex: Female

DRUGS (5)
  1. THYROID THERAPY [Concomitant]
     Dosage: UNK UKN, UNK
  2. PLAVIX [Concomitant]
     Dosage: 75 MG
  3. DIOVAN HCT [Suspect]
     Dosage: 1 DF, (160/25 MG ONE PER DAY)
     Dates: start: 20081204
  4. ASPIRIN [Concomitant]
     Dosage: 81 MG, UNK
  5. LIPITOR [Concomitant]
     Dosage: 80 MG, UNK

REACTIONS (1)
  - MYOCARDIAL INFARCTION [None]
